FAERS Safety Report 6683719-1 (Version None)
Quarter: 2010Q2

REPORT INFORMATION
  Report Type: 
  Country: None (occurrence: None)
  Receive Date: 20100416
  Receipt Date: 20100407
  Transmission Date: 20101027
  Serious: No
  Sender: FDA-Public Use
  Company Number: US-BIOGENIDEC-2010BI011930

PATIENT
  Age: 55 Year
  Sex: Female

DRUGS (1)
  1. TYSABRI [Suspect]
     Indication: MULTIPLE SCLEROSIS
     Route: 042
     Dates: start: 20091001

REACTIONS (7)
  - BLISTER [None]
  - CELLULITIS [None]
  - EXCORIATION [None]
  - FALL [None]
  - NECK PAIN [None]
  - PAIN IN EXTREMITY [None]
  - SCAB [None]
